FAERS Safety Report 18733366 (Version 2)
Quarter: 2021Q2

REPORT INFORMATION
  Report Type: Spontaneous
  Country: US (occurrence: US)
  Receive Date: 20210112
  Receipt Date: 20210412
  Transmission Date: 20210717
  Serious: Yes (Hospitalization, Other)
  Sender: FDA-Public Use
  Company Number: US-DRREDDYS-USA/USA/21/0130889

PATIENT
  Age: 61 Year
  Sex: Female

DRUGS (4)
  1. HEPARIN [Concomitant]
     Active Substance: HEPARIN SODIUM
     Indication: PRODUCT USED FOR UNKNOWN INDICATION
  2. TACROLIMUS. [Suspect]
     Active Substance: TACROLIMUS
     Indication: PRODUCT USED FOR UNKNOWN INDICATION
  3. DECITABINE. [Suspect]
     Active Substance: DECITABINE
     Indication: MYELODYSPLASTIC SYNDROME
  4. AZACITIDINE. [Suspect]
     Active Substance: AZACITIDINE
     Indication: MYELODYSPLASTIC SYNDROME

REACTIONS (13)
  - Glomerulonephritis rapidly progressive [Unknown]
  - Pneumonia respiratory syncytial viral [Unknown]
  - Thrombotic thrombocytopenic purpura [Unknown]
  - Acute kidney injury [Unknown]
  - Haemolytic uraemic syndrome [Unknown]
  - Influenza [Unknown]
  - End stage renal disease [Unknown]
  - Posterior reversible encephalopathy syndrome [Unknown]
  - Epistaxis [Recovered/Resolved]
  - Anaemia [Unknown]
  - Confusional state [Unknown]
  - Thrombocytopenia [Unknown]
  - Seizure [Unknown]
